FAERS Safety Report 16313211 (Version 2)
Quarter: 2019Q4

REPORT INFORMATION
  Report Type: Spontaneous
  Country: US (occurrence: US)
  Receive Date: 20190515
  Receipt Date: 20191112
  Transmission Date: 20200122
  Serious: No
  Sender: FDA-Public Use
  Company Number: US-009507513-1905USA006209

PATIENT
  Sex: Female
  Weight: 82.5 kg

DRUGS (1)
  1. PRINIVIL [Suspect]
     Active Substance: LISINOPRIL

REACTIONS (4)
  - Disorientation [Unknown]
  - Confusional state [Unknown]
  - Memory impairment [Unknown]
  - Drug hypersensitivity [Unknown]
